FAERS Safety Report 7690267-9 (Version None)
Quarter: 2011Q3

REPORT INFORMATION
  Report Type: 
  Country: None (occurrence: None)
  Receive Date: 20110818
  Receipt Date: 20110812
  Transmission Date: 20111222
  Serious: No
  Sender: FDA-Public Use
  Company Number: US-PFIZER INC-2011186872

PATIENT
  Sex: Male

DRUGS (14)
  1. NEXIUM [Concomitant]
     Dosage: 20 MG, UNK
  2. ZOCOR [Concomitant]
     Dosage: 10 MG, UNK
  3. ACETYLSALICYLIC ACID [Concomitant]
     Dosage: 81 MG, UNK
  4. COREG [Concomitant]
     Dosage: 25 MG, UNK
  5. AMBIEN [Concomitant]
     Dosage: 10 MG, UNK
  6. SPIRIVA [Concomitant]
  7. VITAMIN B-12 [Concomitant]
     Dosage: 2500 UG, UNK
  8. SUTENT [Suspect]
     Dosage: 37.5 MG (3 CAPSULES) DAILY X 4 WEEKS ON, 2 WEEKS OFF
     Route: 048
  9. IRON [Concomitant]
     Dosage: 50 MG, UNK
  10. METAMUCIL-2 [Concomitant]
     Dosage: 28%
  11. CENTRUM [Concomitant]
     Dosage: UNK
  12. ADVAIR DISKUS 100/50 [Concomitant]
     Dosage: 100/50
  13. ZETIA [Concomitant]
     Dosage: 10 MG, UNK
  14. NAPROXEN (ALEVE) [Concomitant]
     Dosage: 220 MG, UNK

REACTIONS (1)
  - NAUSEA [None]
